FAERS Safety Report 24368703 (Version 3)
Quarter: 2024Q4

REPORT INFORMATION
  Report Type: Spontaneous
  Country: JP (occurrence: JP)
  Receive Date: 20240926
  Receipt Date: 20241110
  Transmission Date: 20250114
  Serious: Yes (Hospitalization)
  Sender: ABBVIE
  Company Number: JP-ABBVIE-5933203

PATIENT
  Age: 38 Year
  Sex: Female

DRUGS (3)
  1. HUMIRA [Suspect]
     Active Substance: ADALIMUMAB
     Indication: Crohn^s disease
     Route: 058
  2. PREDNISOLONE [Concomitant]
     Active Substance: PREDNISOLONE
     Indication: Myelin oligodendrocyte glycoprotein antibody-associated disease
     Route: 065
  3. PREDNISOLONE [Concomitant]
     Active Substance: PREDNISOLONE
     Indication: Myelin oligodendrocyte glycoprotein antibody-associated disease
     Dosage: GRADUALLY REDUCED
     Route: 065

REACTIONS (1)
  - Myelin oligodendrocyte glycoprotein antibody-associated disease [Unknown]
